FAERS Safety Report 8309680-1 (Version None)
Quarter: 2012Q2

REPORT INFORMATION
  Report Type: 
  Country: None (occurrence: None)
  Receive Date: 20120423
  Receipt Date: 20120417
  Transmission Date: 20120825
  Serious: Yes (Other)
  Sender: FDA-Public Use
  Company Number: 132858

PATIENT
  Age: 55 Year
  Sex: Female

DRUGS (1)
  1. DAUNORUBICIN HCL [Suspect]
     Indication: MYELOID LEUKAEMIA
     Dosage: 120MG PER DAY X 3 DAYS PER CYCLE
     Dates: start: 20120416

REACTIONS (2)
  - EXPIRED DRUG ADMINISTERED [None]
  - MEDICATION ERROR [None]
